FAERS Safety Report 7044961-3 (Version None)
Quarter: 2010Q4

REPORT INFORMATION
  Report Type: 
  Country: None (occurrence: None)
  Receive Date: 20101014
  Receipt Date: 20101011
  Transmission Date: 20110411
  Serious: Yes (Death, Hospitalization)
  Sender: FDA-Public Use
  Company Number: PHHO2010US15387

PATIENT
  Sex: Male

DRUGS (9)
  1. SIMULECT [Suspect]
     Indication: LIVER TRANSPLANT
     Dosage: 20MG
     Route: 042
     Dates: start: 20090511
  2. SIMULECT [Suspect]
     Dosage: 20MG
     Route: 042
     Dates: start: 20090513
  3. BELATACEPT [Suspect]
  4. CELLCEPT [Suspect]
  5. ZOLOFT [Concomitant]
  6. URSODIOL [Concomitant]
  7. PARACENTESIS ABDOMINAL [Concomitant]
  8. DIURETICS [Concomitant]
  9. DIALYSIS [Concomitant]

REACTIONS (4)
  - COAGULOPATHY [None]
  - MULTI-ORGAN FAILURE [None]
  - PULMONARY OEDEMA [None]
  - RESPIRATORY DISTRESS [None]
